FAERS Safety Report 5144215-6 (Version None)
Quarter: 2006Q4

REPORT INFORMATION
  Report Type: 
  Country: None (occurrence: None)
  Receive Date: 20061106
  Receipt Date: 20061018
  Transmission Date: 20070319
  Serious: Yes (Hospitalization)
  Sender: FDA-Public Use
  Company Number: JP-ROCHE-468080

PATIENT
  Age: 1 Hour
  Sex: Female
  Weight: 2.4 kg

DRUGS (4)
  1. RIVOTRIL [Suspect]
     Indication: BORDERLINE PERSONALITY DISORDER
     Dosage: START DATE REPORTED AS BEFORE JAN 2006 SECOND INDICATION: INSOMNIA
     Route: 064
  2. HALCION [Suspect]
     Indication: BORDERLINE PERSONALITY DISORDER
     Route: 064
     Dates: start: 20060524
  3. LEVOMEPROMAZINE [Suspect]
     Indication: BORDERLINE PERSONALITY DISORDER
     Dosage: IMMEDIATELY BEFORE DELIVERY
     Route: 064
     Dates: start: 20060524
  4. HIRNAMIN [Suspect]
     Indication: BORDERLINE PERSONALITY DISORDER
     Route: 064
     Dates: start: 20060524

REACTIONS (3)
  - DRUG EXPOSURE DURING PREGNANCY [None]
  - INFANTILE APNOEIC ATTACK [None]
  - TRISOMY 21 [None]
